FAERS Safety Report 8986636 (Version 1)
Quarter: 2012Q4

REPORT INFORMATION
  Report Type: Spontaneous
  Country: US (occurrence: None)
  Receive Date: 20121219
  Receipt Date: 20121219
  Transmission Date: 20130627
  Serious: Yes (Other)
  Sender: FDA-Public Use
  Company Number: None

PATIENT
  Age: 60 Year
  Sex: Female
  Weight: 90.72 kg

DRUGS (1)
  1. VANCOMYCIN [Suspect]
     Indication: INFECTION MRSA
     Dosage: 500MG  2X A DAY  IV DRIP
     Route: 041
     Dates: start: 20121019, end: 20121202

REACTIONS (7)
  - Rash pruritic [None]
  - Skin fissures [None]
  - Skin haemorrhage [None]
  - Urticaria [None]
  - Hearing impaired [None]
  - Dry skin [None]
  - Eustachian tube disorder [None]
